FAERS Safety Report 21510994 (Version 1)
Quarter: 2022Q4

REPORT INFORMATION
  Report Type: Spontaneous
  Country: US (occurrence: US)
  Receive Date: 20221027
  Receipt Date: 20221027
  Transmission Date: 20230113
  Serious: No
  Sender: FDA-Public Use
  Company Number: US-JNJFOC-20221021698

PATIENT
  Age: 49 Year
  Sex: Female
  Weight: 67.13 kg

DRUGS (8)
  1. ZYRTEC [Suspect]
     Active Substance: CETIRIZINE HYDROCHLORIDE
     Indication: Anaphylactic reaction
     Route: 065
     Dates: start: 20221004
  2. BENADRYL [Suspect]
     Active Substance: DIPHENHYDRAMINE HYDROCHLORIDE
     Indication: Anaphylactic reaction
     Route: 065
     Dates: start: 20221004
  3. PROPOFOL [Concomitant]
     Active Substance: PROPOFOL
     Indication: Colonoscopy
     Route: 042
     Dates: start: 20221004
  4. ARMOUR THYROID [Concomitant]
     Active Substance: THYROID, PORCINE
     Indication: Thyroid disorder
     Route: 065
  5. ESTROGENS [Concomitant]
     Active Substance: ESTROGENS
     Indication: Product used for unknown indication
     Route: 065
  6. PROGESTERONE [Concomitant]
     Active Substance: PROGESTERONE
     Indication: Product used for unknown indication
     Route: 065
  7. FLONASE [Concomitant]
     Active Substance: FLUTICASONE PROPIONATE
     Indication: Swelling
     Route: 065
     Dates: start: 202210
  8. ADVIL [Concomitant]
     Active Substance: IBUPROFEN
     Indication: Swelling
     Route: 065
     Dates: start: 202210

REACTIONS (1)
  - Off label use [Unknown]

NARRATIVE: CASE EVENT DATE: 20221004
